FAERS Safety Report 6256046-4 (Version None)
Quarter: 2009Q2

REPORT INFORMATION
  Report Type: 
  Country: None (occurrence: None)
  Receive Date: 20090630
  Receipt Date: 20090630
  Transmission Date: 20091009
  Serious: No
  Sender: FDA-Public Use
  Company Number: None

PATIENT
  Age: 44 Year
  Sex: Female
  Weight: 95.2554 kg

DRUGS (1)
  1. ZICAM [Suspect]
     Indication: UPPER RESPIRATORY TRACT INFECTION
     Dates: start: 20080704, end: 20080707

REACTIONS (2)
  - AGEUSIA [None]
  - ANOSMIA [None]
